FAERS Safety Report 21830679 (Version 5)
Quarter: 2023Q2

REPORT INFORMATION
  Report Type: Report from Study
  Country: CN (occurrence: CN)
  Receive Date: 20230106
  Receipt Date: 20230529
  Transmission Date: 20230722
  Serious: Yes (Other)
  Sender: FDA-Public Use
  Company Number: CN-KYOWAKIRIN-2022AKK000737

PATIENT

DRUGS (30)
  1. BUROSUMAB [Suspect]
     Active Substance: BUROSUMAB
     Indication: Hereditary hypophosphataemic rickets
     Dosage: 20 MG
     Route: 065
     Dates: start: 20220721
  2. BUROSUMAB [Suspect]
     Active Substance: BUROSUMAB
     Dosage: 20 MG
     Route: 065
     Dates: start: 20220804
  3. BUROSUMAB [Suspect]
     Active Substance: BUROSUMAB
     Dosage: 20 MG
     Route: 065
     Dates: start: 20220818
  4. BUROSUMAB [Suspect]
     Active Substance: BUROSUMAB
     Dosage: 30 MG
     Route: 065
     Dates: start: 20220829
  5. BUROSUMAB [Suspect]
     Active Substance: BUROSUMAB
     Dosage: 30 MG
     Route: 065
     Dates: start: 20220914
  6. BUROSUMAB [Suspect]
     Active Substance: BUROSUMAB
     Dosage: 30 MG
     Route: 065
     Dates: start: 20220928
  7. BUROSUMAB [Suspect]
     Active Substance: BUROSUMAB
     Dosage: 30 MG
     Route: 065
     Dates: start: 20221013
  8. BUROSUMAB [Suspect]
     Active Substance: BUROSUMAB
     Dosage: 30 MG
     Route: 065
     Dates: start: 20221027
  9. BUROSUMAB [Suspect]
     Active Substance: BUROSUMAB
     Dosage: 30 MG
     Route: 065
     Dates: start: 20221109
  10. BUROSUMAB [Suspect]
     Active Substance: BUROSUMAB
     Dosage: 30 MG
     Route: 065
     Dates: start: 20221124
  11. BUROSUMAB [Suspect]
     Active Substance: BUROSUMAB
     Dosage: 30 MG
     Route: 065
     Dates: start: 20221208
  12. BUROSUMAB [Suspect]
     Active Substance: BUROSUMAB
     Dosage: 30 MG
     Route: 065
     Dates: start: 20221229
  13. BUROSUMAB [Suspect]
     Active Substance: BUROSUMAB
     Dosage: 30 MG
     Route: 065
     Dates: start: 20230105
  14. BUROSUMAB [Suspect]
     Active Substance: BUROSUMAB
     Dosage: 40 MG
     Route: 065
     Dates: start: 20230117
  15. BUROSUMAB [Suspect]
     Active Substance: BUROSUMAB
     Dosage: 40 MG
     Route: 065
     Dates: start: 20230202
  16. BUROSUMAB [Suspect]
     Active Substance: BUROSUMAB
     Dosage: 40 MG
     Route: 065
     Dates: start: 20230213
  17. BUROSUMAB [Suspect]
     Active Substance: BUROSUMAB
     Dosage: 40 MG
     Route: 065
     Dates: start: 20230302
  18. BUROSUMAB [Suspect]
     Active Substance: BUROSUMAB
     Dosage: 40 MG
     Route: 065
     Dates: start: 20230313
  19. BUROSUMAB [Suspect]
     Active Substance: BUROSUMAB
     Dosage: 40 MG
     Route: 065
     Dates: start: 20230330
  20. BUROSUMAB [Suspect]
     Active Substance: BUROSUMAB
     Dosage: 40 MG
     Route: 065
     Dates: start: 20230410
  21. BUROSUMAB [Suspect]
     Active Substance: BUROSUMAB
     Dosage: 40 MG
     Route: 065
     Dates: start: 20230427
  22. BUROSUMAB [Suspect]
     Active Substance: BUROSUMAB
     Dosage: 40 MG
     Route: 065
     Dates: start: 20230508
  23. BUROSUMAB [Suspect]
     Active Substance: BUROSUMAB
     Dosage: 40 MG
     Route: 065
     Dates: start: 20230525
  24. HERBAL NOS [Concomitant]
     Active Substance: HERBALS
     Indication: Upper respiratory tract infection
     Dosage: UNK
     Route: 048
     Dates: start: 20220926, end: 20220927
  25. HERBAL NOS [Concomitant]
     Active Substance: HERBALS
     Indication: Dyspepsia
     Dosage: UNK
     Route: 048
     Dates: start: 20220926, end: 20220926
  26. HERBAL NOS [Concomitant]
     Active Substance: HERBALS
     Indication: COVID-19
     Dosage: UNK
     Route: 048
     Dates: start: 20221224, end: 20221224
  27. IBUPROFEN [Concomitant]
     Active Substance: IBUPROFEN
     Indication: COVID-19
     Dosage: UNK
     Route: 048
     Dates: start: 20221224, end: 20221224
  28. HERBAL NOS [Concomitant]
     Active Substance: HERBALS
     Indication: COVID-19
     Dosage: UNK
     Route: 048
     Dates: start: 20221224, end: 20221224
  29. HERBAL NOS [Concomitant]
     Active Substance: HERBALS
     Indication: COVID-19
     Dosage: UNK
     Route: 048
     Dates: start: 20221224, end: 20221225
  30. POLYSACCHARIDE MENINGOCOCCAL A AND C VACCINE [Concomitant]
     Indication: Prophylaxis
     Dosage: UNK
     Route: 042
     Dates: start: 20230218, end: 20230218

REACTIONS (14)
  - Nephrolithiasis [Not Recovered/Not Resolved]
  - Vitamin D deficiency [Recovered/Resolved]
  - Vitamin D deficiency [Not Recovered/Not Resolved]
  - Upper respiratory tract infection [Recovered/Resolved]
  - Dyspepsia [Recovered/Resolved]
  - COVID-19 [Not Recovered/Not Resolved]
  - Upper respiratory tract infection [Recovered/Resolved]
  - Abdominal distension [Recovered/Resolved]
  - Cough [Recovered/Resolved]
  - Gingival swelling [Recovered/Resolved]
  - Renal cyst [Recovered/Resolved]
  - Upper respiratory tract infection [Recovered/Resolved]
  - Upper respiratory tract infection [Recovered/Resolved]
  - Vitamin D deficiency [Recovered/Resolved]

NARRATIVE: CASE EVENT DATE: 20211213
